FAERS Safety Report 4685556-6 (Version None)
Quarter: 2005Q2

REPORT INFORMATION
  Report Type: 
  Country: None (occurrence: None)
  Receive Date: 20050527
  Receipt Date: 20050425
  Transmission Date: 20051028
  Serious: Yes (Other)
  Sender: FDA-Public Use
  Company Number: 2250051-2005-00159

PATIENT
  Sex: Female

DRUGS (1)
  1. RHOGAM [Suspect]

REACTIONS (1)
  - HEPATITIS C [None]
